FAERS Safety Report 8508899-4 (Version None)
Quarter: 2012Q3

REPORT INFORMATION
  Report Type: 
  Country: None (occurrence: None)
  Receive Date: 20120713
  Receipt Date: 20120706
  Transmission Date: 20120928
  Serious: Yes (Hospitalization)
  Sender: FDA-Public Use
  Company Number: US-ASTRAZENECA-2012SE38438

PATIENT
  Age: 60 Year
  Sex: Female

DRUGS (3)
  1. NEXIUM [Suspect]
     Route: 048
  2. NEXIUM [Suspect]
     Indication: BARRETT'S OESOPHAGUS
     Route: 048
  3. ZOLOFT [Concomitant]
     Indication: DEPRESSION

REACTIONS (9)
  - INTENTIONAL DRUG MISUSE [None]
  - DEPRESSION [None]
  - OFF LABEL USE [None]
  - ACCIDENT AT WORK [None]
  - DYSPEPSIA [None]
  - SKIN LESION [None]
  - MENTAL DISORDER [None]
  - SPEECH DISORDER [None]
  - GASTROOESOPHAGEAL REFLUX DISEASE [None]
